FAERS Safety Report 18612105 (Version 1)
Quarter: 2020Q4

REPORT INFORMATION
  Report Type: Spontaneous
  Country: US (occurrence: US)
  Receive Date: 20201214
  Receipt Date: 20201214
  Transmission Date: 20210114
  Serious: Yes (Hospitalization, Other)
  Sender: FDA-Public Use
  Company Number: None

PATIENT
  Age: 61 Year
  Sex: Female
  Weight: 65.25 kg

DRUGS (1)
  1. BAMLANIVIMAB. [Suspect]
     Active Substance: BAMLANIVIMAB
     Indication: COVID-19
     Dosage: ?          OTHER FREQUENCY:ONCE;?
     Route: 013
     Dates: start: 20201202, end: 20201202

REACTIONS (8)
  - Hypotension [None]
  - Asthenia [None]
  - Hypokalaemia [None]
  - Asthma [None]
  - Anxiety [None]
  - Hypertension [None]
  - COVID-19 pneumonia [None]
  - Dizziness [None]

NARRATIVE: CASE EVENT DATE: 20201202
